FAERS Safety Report 12480407 (Version 1)
Quarter: 2016Q2

REPORT INFORMATION
  Report Type: Spontaneous
  Country: US (occurrence: None)
  Receive Date: 20160617
  Receipt Date: 20160617
  Transmission Date: 20160815
  Serious: Yes (Life-Threatening, Hospitalization, Disabling, Other)
  Sender: FDA-Public Use
  Company Number: None

PATIENT
  Age: 73 Year
  Sex: Male
  Weight: 88.45 kg

DRUGS (15)
  1. SENNA [Concomitant]
     Active Substance: SENNA LEAF\SENNOSIDES\SENNOSIDES A AND B
  2. COLCHICINE. [Concomitant]
     Active Substance: COLCHICINE
  3. MULTIVITAMIN [Concomitant]
     Active Substance: VITAMINS
  4. SYMBICORT [Concomitant]
     Active Substance: BUDESONIDE\FORMOTEROL FUMARATE DIHYDRATE
  5. VITAMIN D2 [Concomitant]
     Active Substance: ERGOCALCIFEROL
  6. TRAMADOL HCL [Concomitant]
     Active Substance: TRAMADOL HYDROCHLORIDE
  7. CARBIDOPA-LEVODOPA [Concomitant]
     Active Substance: CARBIDOPA\LEVODOPA
  8. GABAPENTIN. [Concomitant]
     Active Substance: GABAPENTIN
  9. RENAL VITE [Concomitant]
  10. CYCLOBENZAPRINE [Suspect]
     Active Substance: CYCLOBENZAPRINE
     Indication: MUSCULOSKELETAL STIFFNESS
     Dosage: 21 TABLET(S) THREE TIMES A DAY TAKEN BY MOUTH
     Route: 048
     Dates: start: 20151217, end: 20151220
  11. VALSARTAN-HYDROCHLOROTHIAZIDE [Concomitant]
     Active Substance: HYDROCHLOROTHIAZIDE\VALSARTAN
  12. ALBUTEROL. [Concomitant]
     Active Substance: ALBUTEROL
  13. TITOTROPIUM [Concomitant]
  14. ULRIC ACID [Concomitant]
  15. DULOXETINE HYDROCHLORIDE. [Concomitant]
     Active Substance: DULOXETINE HYDROCHLORIDE

REACTIONS (19)
  - Heart rate increased [None]
  - Polyneuropathy [None]
  - Hyponatraemia [None]
  - Back pain [None]
  - Drug dose titration not performed [None]
  - Respiratory failure [None]
  - Ileus paralytic [None]
  - Thrombocytopenia [None]
  - Pain in extremity [None]
  - Drug prescribing error [None]
  - Decubitus ulcer [None]
  - Tremor [None]
  - Anaemia [None]
  - Asthenia [None]
  - Body temperature increased [None]
  - Sepsis [None]
  - Dysphagia [None]
  - Acute kidney injury [None]
  - Hypoosmolar state [None]

NARRATIVE: CASE EVENT DATE: 20151221
